FAERS Safety Report 7562737-5 (Version None)
Quarter: 2011Q2

REPORT INFORMATION
  Report Type: 
  Country: None (occurrence: None)
  Receive Date: 20110622
  Receipt Date: 20110614
  Transmission Date: 20111010
  Serious: Yes (Death, Hospitalization)
  Sender: FDA-Public Use
  Company Number: JP-JNJFOC-20110107856

PATIENT
  Sex: Female
  Weight: 42 kg

DRUGS (36)
  1. DOXIL [Suspect]
     Dosage: CYCLE 1
     Route: 042
     Dates: start: 20091009, end: 20091009
  2. DECADRON [Concomitant]
     Route: 042
     Dates: start: 20091010, end: 20091012
  3. HIRUDOID CREAM [Concomitant]
     Indication: PALMAR-PLANTAR ERYTHRODYSAESTHESIA SYNDROME
     Route: 061
     Dates: start: 20100506
  4. PRIMPERAN TAB [Concomitant]
     Indication: PROPHYLAXIS
     Route: 048
     Dates: start: 20091009, end: 20091015
  5. DIPHENHYDRAMINE LAURILSULFATE [Concomitant]
     Indication: PALMAR-PLANTAR ERYTHRODYSAESTHESIA SYNDROME
     Route: 061
     Dates: start: 20091225, end: 20100512
  6. VALTREX [Concomitant]
     Route: 048
     Dates: start: 20100129, end: 20100208
  7. ALDACTONE [Concomitant]
     Indication: MALIGNANT ASCITES
     Route: 048
     Dates: start: 20100901
  8. DOXIL [Suspect]
     Dosage: CYCLE 7
     Route: 042
     Dates: start: 20100507, end: 20100507
  9. MAGMITT [Concomitant]
     Route: 048
     Dates: end: 20100610
  10. NEUTROGIN [Concomitant]
     Indication: NEUTROPENIA
     Route: 058
  11. NEUTROGIN [Concomitant]
     Route: 058
     Dates: start: 20091030, end: 20091030
  12. DECADRON [Concomitant]
     Route: 042
     Dates: start: 20091009
  13. BARAMYCIN [Concomitant]
     Indication: PALMAR-PLANTAR ERYTHRODYSAESTHESIA SYNDROME
     Route: 061
     Dates: start: 20100604
  14. BETAMETHASONE SODIUM PHOSPHATE [Concomitant]
     Indication: PALMAR-PLANTAR ERYTHRODYSAESTHESIA SYNDROME
     Route: 061
     Dates: start: 20100702, end: 20100819
  15. GASMOTIN [Concomitant]
     Indication: NAUSEA
     Route: 048
     Dates: start: 20100820
  16. LASIX [Concomitant]
     Indication: MALIGNANT ASCITES
     Route: 048
     Dates: start: 20100901
  17. DOXIL [Suspect]
     Indication: OVARIAN CANCER RECURRENT
     Dosage: CYCLE 9
     Route: 042
     Dates: start: 20100806, end: 20100806
  18. DOXIL [Suspect]
     Dosage: CYCLE 8
     Route: 042
     Dates: start: 20100604, end: 20100604
  19. DECADRON [Concomitant]
     Route: 042
     Dates: start: 20091010, end: 20091012
  20. GRANISETRON HCL [Concomitant]
     Indication: PROPHYLAXIS
     Route: 041
     Dates: start: 20091009, end: 20100806
  21. ACRINOL [Concomitant]
     Indication: PALMAR-PLANTAR ERYTHRODYSAESTHESIA SYNDROME
     Route: 065
     Dates: start: 20100625
  22. MAGMITT [Concomitant]
     Indication: CONSTIPATION
     Route: 048
     Dates: start: 20100611
  23. DECADRON [Concomitant]
     Route: 042
     Dates: start: 20091009
  24. DECADRON [Concomitant]
     Indication: PALMAR-PLANTAR ERYTHRODYSAESTHESIA SYNDROME
     Route: 042
  25. KETOCONAZOLE [Concomitant]
     Indication: PALMAR-PLANTAR ERYTHRODYSAESTHESIA SYNDROME
     Route: 061
     Dates: start: 20100625, end: 20100819
  26. DOXIL [Suspect]
     Dosage: CYCLE 6
     Route: 042
     Dates: start: 20100401, end: 20100401
  27. GASPORT [Concomitant]
     Route: 048
     Dates: start: 20100512
  28. VALTREX [Concomitant]
     Indication: HERPES ZOSTER
     Route: 048
     Dates: start: 20100625, end: 20100630
  29. DOXIL [Suspect]
     Dosage: CYCLE 5
     Route: 042
     Dates: start: 20100304, end: 20100304
  30. DOXIL [Suspect]
     Dosage: CYCLE 3
     Route: 042
     Dates: start: 20091204, end: 20091204
  31. POLARAMINE [Concomitant]
     Indication: PRURITUS
     Route: 048
     Dates: start: 20091211
  32. DOXIL [Suspect]
     Dosage: CYCLE 4
     Route: 042
     Dates: start: 20100107, end: 20100107
  33. DOXIL [Suspect]
     Dosage: CYCLE 2
     Route: 042
     Dates: start: 20091106, end: 20091106
  34. POLARAMINE [Concomitant]
     Route: 048
     Dates: start: 20091016, end: 20091210
  35. DECADRON [Concomitant]
     Indication: PROPHYLAXIS
     Route: 042
  36. METHYCOBAL [Concomitant]
     Indication: PALMAR-PLANTAR ERYTHRODYSAESTHESIA SYNDROME
     Route: 048
     Dates: start: 20100625

REACTIONS (5)
  - CANCER PAIN [None]
  - MALIGNANT ASCITES [None]
  - OVARIAN CANCER RECURRENT [None]
  - PRURITUS [None]
  - PALMAR-PLANTAR ERYTHRODYSAESTHESIA SYNDROME [None]
